FAERS Safety Report 7797216-3 (Version None)
Quarter: 2011Q4

REPORT INFORMATION
  Report Type: 
  Country: None (occurrence: None)
  Receive Date: 20111005
  Receipt Date: 20110923
  Transmission Date: 20120403
  Serious: Yes (Other)
  Sender: FDA-Public Use
  Company Number: PHFR2011GB05424

PATIENT
  Sex: Male

DRUGS (9)
  1. NALTREXONE HYDROCHLORIDE [Concomitant]
     Dosage: 50 MG, NOCTE
     Route: 065
  2. ARIPIPRAZOLE [Concomitant]
     Dosage: 5 MG/DAY
     Route: 065
  3. FLUOXETINE [Concomitant]
     Dosage: 40 MG, MANE
     Route: 065
  4. ZOPICLONE [Concomitant]
     Dosage: 7.5 MG, NOCTE
     Route: 065
  5. CLOZAPINE [Suspect]
     Indication: SCHIZOPHRENIA
     Dosage: 350 MG/DAY
     Route: 048
     Dates: start: 20100622
  6. OMEPRAZOLE [Concomitant]
     Dosage: 40 MG, MANE
     Route: 065
  7. DIAZEPAM [Concomitant]
     Dosage: 4 MG/DAY
     Route: 065
  8. METFORMIN HCL [Concomitant]
     Dosage: 500 MG/DAY
     Route: 065
  9. SCOPODERM [Concomitant]
     Route: 062

REACTIONS (7)
  - MALAISE [None]
  - HYPERHIDROSIS [None]
  - PLATELET COUNT DECREASED [None]
  - HEPATITIS C [None]
  - WHITE BLOOD CELL COUNT DECREASED [None]
  - OROPHARYNGEAL PAIN [None]
  - OBESITY [None]
